FAERS Safety Report 11398380 (Version 1)
Quarter: 2015Q3

REPORT INFORMATION
  Report Type: Spontaneous
  Country: US (occurrence: None)
  Receive Date: 20150817
  Receipt Date: 20150817
  Transmission Date: 20151125
  Serious: Yes (Hospitalization)
  Sender: FDA-Public Use
  Company Number: None

PATIENT
  Sex: Female
  Weight: 98.2 kg

DRUGS (17)
  1. ZOFRAN [Concomitant]
     Active Substance: ONDANSETRON HYDROCHLORIDE
  2. CYCLOSP0RINE OPHTHALMIC (RASTASIA) [Concomitant]
  3. OXYMETAZOLINE NASAL (AFRIN) [Concomitant]
  4. METRONIDAZOLE. [Concomitant]
     Active Substance: METRONIDAZOLE
  5. RIBAVIRIN 600MG [Suspect]
     Active Substance: RIBAVIRIN
     Indication: HEPATITIS C
     Dosage: 600MG TOTAL: 400MG AM/200MG PM ?
     Route: 048
     Dates: start: 20150624
  6. LASIX [Concomitant]
     Active Substance: FUROSEMIDE
  7. CIPROFLOXACIN. [Concomitant]
     Active Substance: CIPROFLOXACIN
  8. PANTOPRAZOLE [Concomitant]
     Active Substance: PANTOPRAZOLE SODIUM
  9. PROPRANOLOL [Concomitant]
     Active Substance: PROPRANOLOL\PROPRANOLOL HYDROCHLORIDE
  10. HARVONI [Suspect]
     Active Substance: LEDIPASVIR\SOFOSBUVIR
     Indication: HEPATITIS C
     Route: 048
     Dates: start: 20150624
  11. MIRALAX [Concomitant]
     Active Substance: POLYETHYLENE GLYCOL 3350
  12. AZELASTINE NASAL (ASTELIN) [Concomitant]
  13. CALCIUM CARBONATE-VITAMIN D [Concomitant]
     Active Substance: CALCIUM CARBONATE\VITAMIN D
  14. MULTIVITAMIN [Concomitant]
     Active Substance: VITAMINS
  15. RIFAXIMIN [Concomitant]
     Active Substance: RIFAXIMIN
  16. SPIRONOLACTONE. [Concomitant]
     Active Substance: SPIRONOLACTONE
  17. TRIAMCINOLONE NASAL (NASACORT ALLERGY) [Concomitant]

REACTIONS (4)
  - Diarrhoea [None]
  - Nausea [None]
  - Vomiting [None]
  - Post embolisation syndrome [None]

NARRATIVE: CASE EVENT DATE: 20150803
